FAERS Safety Report 23454344 (Version 1)
Quarter: 2024Q1

REPORT INFORMATION
  Report Type: Spontaneous
  Country: US (occurrence: US)
  Receive Date: 20240130
  Receipt Date: 20240130
  Transmission Date: 20240410
  Serious: Yes (Other)
  Sender: FDA-Public Use
  Company Number: US-ENDO PHARMACEUTICALS INC-2023-001069

PATIENT
  Age: 79 Year
  Sex: Male
  Weight: 75.283 kg

DRUGS (4)
  1. FORTESTA [Suspect]
     Active Substance: TESTOSTERONE
     Indication: Blood testosterone decreased
     Dosage: UNKNOWN, OD (ONE SQUIRT TO EACH LEG ON INNER THIGH, EVERY MORNING)
     Route: 061
  2. FORTESTA [Suspect]
     Active Substance: TESTOSTERONE
     Indication: Blood testosterone decreased
     Dosage: UNKNOWN, OD (ONE SQUIRT TO EACH LEG ON INNER THIGH, EVERY MORNING)
     Route: 061
  3. FORTESTA [Suspect]
     Active Substance: TESTOSTERONE
     Dosage: UNKNOWN, OD (TWO SQUIRT TO EACH LEG ON INNER THIGH, EVERY MORNING)
     Route: 061
     Dates: start: 202211, end: 20230218
  4. FORTESTA [Suspect]
     Active Substance: TESTOSTERONE
     Dosage: UNKNOWN, OD (TWO SQUIRT TO EACH LEG ON INNER THIGH, EVERY MORNING)
     Route: 061
     Dates: start: 202211, end: 20230218

REACTIONS (3)
  - Cerebrovascular accident [Unknown]
  - Blood testosterone decreased [Recovered/Resolved]
  - Pruritus [Recovering/Resolving]

NARRATIVE: CASE EVENT DATE: 20220801
